FAERS Safety Report 7412404-3 (Version None)
Quarter: 2011Q2

REPORT INFORMATION
  Report Type: 
  Country: None (occurrence: None)
  Receive Date: 20110413
  Receipt Date: 20110331
  Transmission Date: 20111010
  Serious: Yes (Hospitalization)
  Sender: FDA-Public Use
  Company Number: CA-ELI_LILLY_AND_COMPANY-CA201102006870

PATIENT
  Age: 62 Year
  Sex: Female

DRUGS (15)
  1. FOLIC ACID [Concomitant]
  2. FORTEO [Suspect]
     Dosage: 20 UG, DAILY (1/D)
     Route: 058
     Dates: start: 20110128
  3. ATACAND [Concomitant]
  4. MULTI-VITAMIN [Concomitant]
  5. OXYCONTIN [Concomitant]
  6. PREDNISONE [Concomitant]
  7. CLONAZEPAM [Concomitant]
  8. RITUXAN [Concomitant]
  9. CEREZYME [Concomitant]
  10. PAXIL [Concomitant]
  11. CALCIUM [Concomitant]
  12. VITAMIN D [Concomitant]
  13. ZOPICLONE [Concomitant]
  14. FORTEO [Suspect]
     Indication: OSTEOPOROSIS
     Dosage: 20 UG, DAILY (1/D)
     Route: 058
     Dates: start: 20090527, end: 20110124
  15. VITAMIN B COMPLEX CAP [Concomitant]

REACTIONS (4)
  - ABDOMINAL MASS [None]
  - POLYP COLORECTAL [None]
  - RHEUMATOID ARTHRITIS [None]
  - PATHOLOGICAL FRACTURE [None]
